FAERS Safety Report 9722857 (Version 1)
Quarter: 2013Q4

REPORT INFORMATION
  Report Type: Spontaneous
  Country: US (occurrence: None)
  Receive Date: 20131126
  Receipt Date: 20131126
  Transmission Date: 20140711
  Serious: Yes (Other)
  Sender: FDA-Public Use
  Company Number: B0946532A

PATIENT
  Sex: 0

DRUGS (3)
  1. MALPHALAN (FORMULATION UNKNOWN) (MELPHALAN) (GENERIC) [Suspect]
     Indication: PRODUCT USED FOR UNKNOWN INDICATION
  2. BUSULPHAN [Suspect]
     Indication: PRODUCT USED FOR UNKNOWN INDICATION
  3. FLUDARABINE PHOSPHATE (FORMULATION UNKNOWN) (FLUDARABINE PHOSPHATE) [Suspect]
     Indication: PRODUCT USED FOR UNKNOWN INDICATION

REACTIONS (3)
  - Encephalopathy [None]
  - Mucosal inflammation [None]
  - Toxicity to various agents [None]
